FAERS Safety Report 17677714 (Version 3)
Quarter: 2024Q4

REPORT INFORMATION
  Report Type: Spontaneous
  Country: DE (occurrence: DE)
  Receive Date: 20200416
  Receipt Date: 20241003
  Transmission Date: 20250114
  Serious: Yes (Other)
  Sender: BAUSCH AND LOMB
  Company Number: DE-002147023-NVSC2020DE090459

PATIENT
  Sex: Male
  Weight: 127 kg

DRUGS (13)
  1. METFORMIN HYDROCHLORIDE [Suspect]
     Active Substance: METFORMIN HYDROCHLORIDE
     Indication: Product used for unknown indication
     Dosage: 2000 MG, QD, 1000 MG, BID
     Route: 065
     Dates: start: 20100330
  2. EPLERENONE [Suspect]
     Active Substance: EPLERENONE
     Indication: Product used for unknown indication
     Route: 065
     Dates: start: 20200113
  3. ROXITHROMYCIN [Suspect]
     Active Substance: ROXITHROMYCIN
     Indication: Product used for unknown indication
     Dosage: UNK, QD (DOSE: 300 OT)
     Route: 065
     Dates: start: 20200320, end: 20200326
  4. ROXITHROMYCIN [Suspect]
     Active Substance: ROXITHROMYCIN
     Dosage: UNK, QD (FREQUENCY: 1X/DAY)
     Route: 065
     Dates: start: 20200320, end: 20200326
  5. METOPROLOL TARTRATE [Suspect]
     Active Substance: METOPROLOL TARTRATE
     Indication: Product used for unknown indication
     Dosage: 50 OT, BID?METOPROLOL 50 - 1 A PHARMA
     Route: 065
     Dates: start: 20170328
  6. METOPROLOL TARTRATE [Suspect]
     Active Substance: METOPROLOL TARTRATE
     Dosage: UNK, BID?METOPROLOL - 1 A PHARMA
     Route: 065
     Dates: start: 20170328
  7. AMLODIPINE BESYLATE [Suspect]
     Active Substance: AMLODIPINE BESYLATE
     Indication: Product used for unknown indication
     Dosage: 10 MG, QD (5 MG, BID)
     Route: 065
     Dates: start: 20170328
  8. ROSUVASTATIN [Suspect]
     Active Substance: ROSUVASTATIN
     Indication: Product used for unknown indication
     Dosage: 10 MG, QD
     Route: 065
     Dates: start: 20190328
  9. INSULIN ASPART [Suspect]
     Active Substance: INSULIN ASPART
     Indication: Product used for unknown indication
     Dosage: 100 U/ML
     Route: 065
     Dates: start: 20160328
  10. PANTOPRAZOLE SODIUM [Suspect]
     Active Substance: PANTOPRAZOLE SODIUM
     Indication: Product used for unknown indication
     Route: 065
     Dates: start: 20170328
  11. TOUJEO [Suspect]
     Active Substance: INSULIN GLARGINE
     Indication: Product used for unknown indication
     Dosage: 300 U/ML (28 DAILY)
     Route: 065
     Dates: start: 20190606
  12. HYDROCHLOROTHIAZIDE\VALSARTAN [Suspect]
     Active Substance: HYDROCHLOROTHIAZIDE\VALSARTAN
     Indication: Product used for unknown indication
     Dosage: STRENGTH: 160 MG/12.5 MG
     Route: 065
     Dates: start: 20100330
  13. ASPIRIN [Suspect]
     Active Substance: ASPIRIN
     Indication: Product used for unknown indication
     Dosage: 100 UNSPECIFIED UNIT OD
     Route: 065
     Dates: start: 20170301

REACTIONS (9)
  - Arrhythmia [Unknown]
  - Influenza [Unknown]
  - Arthralgia [Unknown]
  - Cardiovascular disorder [Unknown]
  - Hypotonia [Unknown]
  - Palpitations [Unknown]
  - Abdominal pain upper [Unknown]
  - Diarrhoea [Unknown]
  - Nausea [Unknown]

NARRATIVE: CASE EVENT DATE: 20200321
